FAERS Safety Report 7315479-5 (Version None)
Quarter: 2011Q1

REPORT INFORMATION
  Report Type: 
  Country: None (occurrence: None)
  Receive Date: 20110215
  Receipt Date: 20101122
  Transmission Date: 20110831
  Serious: Yes (Hospitalization)
  Sender: FDA-Public Use
  Company Number: DSA_44931_2011

PATIENT
  Age: 79 Year
  Sex: Female

DRUGS (16)
  1. CARDIZEM [Concomitant]
  2. VASOCARDOL (VASOCARDOL-DILTIAZEM HYDROCHLORIDE) [Suspect]
     Indication: HYPERTENSION
     Dosage: 180 MG 1X,AT 7AM ORAL, DF
     Dates: start: 20101122, end: 20101122
  3. LATANOPROST [Concomitant]
  4. SOMAC [Concomitant]
  5. PANAMAX [Concomitant]
  6. KARVEA (KARVEA - IRBESARTAN) (150 MG, 75 MG (NOT SPECIFIED) [Suspect]
     Indication: PRODUCT USED FOR UNKNOWN INDICATION
     Dosage: DF
     Dates: end: 20100101
  7. OSTELIN [Concomitant]
  8. SYSTANE [Concomitant]
  9. FORMOTEROL W/BUDESONIDE [Concomitant]
  10. FUROSEMIDE [Concomitant]
  11. BRICANYL [Concomitant]
  12. ASPIRIN [Concomitant]
  13. OSTEOEZE ACTIVE [Concomitant]
  14. CALTRATE [Concomitant]
  15. ENDEP [Concomitant]
  16. XALATAN [Concomitant]

REACTIONS (4)
  - HEADACHE [None]
  - DIZZINESS [None]
  - DYSARTHRIA [None]
  - PRODUCT SUBSTITUTION ISSUE [None]
